FAERS Safety Report 18405567 (Version 6)
Quarter: 2023Q2

REPORT INFORMATION
  Report Type: Spontaneous
  Country: US (occurrence: US)
  Receive Date: 20201020
  Receipt Date: 20230620
  Transmission Date: 20230722
  Serious: Yes (Other)
  Sender: FDA-Public Use
  Company Number: US-PFIZER INC-2020403772

PATIENT
  Age: 52 Year
  Sex: Female

DRUGS (1)
  1. XELJANZ XR [Suspect]
     Active Substance: TOFACITINIB CITRATE
     Indication: Rheumatoid arthritis
     Dosage: 11 MG, 1X/DAY
     Route: 048
     Dates: start: 2019

REACTIONS (6)
  - Knee arthroplasty [Unknown]
  - COVID-19 [Unknown]
  - Blood cholesterol increased [Unknown]
  - Red blood cell sedimentation rate increased [Recovering/Resolving]
  - Illness [Unknown]
  - Brain fog [Unknown]

NARRATIVE: CASE EVENT DATE: 20220601
